FAERS Safety Report 26067971 (Version 1)
Quarter: 2025Q4

REPORT INFORMATION
  Report Type: Report from Study
  Country: CN (occurrence: CN)
  Receive Date: 20251120
  Receipt Date: 20251120
  Transmission Date: 20260117
  Serious: Yes (Other)
  Sender: ROCHE
  Company Number: CN-ROCHE-10000324699

PATIENT
  Age: 63 Year
  Sex: Female
  Weight: 72 kg

DRUGS (34)
  1. POLATUZUMAB VEDOTIN [Suspect]
     Active Substance: POLATUZUMAB VEDOTIN
     Indication: Diffuse large B-cell lymphoma
     Dosage: MOST RECENT DOSE: 15-JUL-2025
     Route: 042
     Dates: start: 20250228, end: 20250228
  2. POLATUZUMAB VEDOTIN [Suspect]
     Active Substance: POLATUZUMAB VEDOTIN
     Route: 042
     Dates: start: 20250618, end: 20250618
  3. POLATUZUMAB VEDOTIN [Suspect]
     Active Substance: POLATUZUMAB VEDOTIN
     Route: 042
     Dates: start: 20250715, end: 20250715
  4. RITUXIMAB [Suspect]
     Active Substance: RITUXIMAB
     Indication: Diffuse large B-cell lymphoma
     Route: 042
     Dates: end: 20250715
  5. RITUXIMAB [Suspect]
     Active Substance: RITUXIMAB
     Indication: Diffuse large B-cell lymphoma
     Dosage: MOST RECENT DOSE: 15-JUL-2025
     Route: 042
     Dates: start: 20250301, end: 20250301
  6. DOXORUBICIN HYDROCHLORIDE [Suspect]
     Active Substance: DOXORUBICIN HYDROCHLORIDE
     Indication: Diffuse large B-cell lymphoma
     Dosage: MOST RECENT DOSE: 16-JUL-2025
     Route: 042
     Dates: start: 20250619, end: 20250619
  7. DOXORUBICIN HYDROCHLORIDE [Suspect]
     Active Substance: DOXORUBICIN HYDROCHLORIDE
     Dosage: MOST RECENT DOSE: 16-JUL-2025
     Route: 042
     Dates: start: 20250716, end: 20250716
  8. CYCLOPHOSPHAMIDE [Suspect]
     Active Substance: CYCLOPHOSPHAMIDE
     Indication: Diffuse large B-cell lymphoma
     Dosage: MOST RECENT DOSE: 16-JUL-2025
     Route: 042
     Dates: start: 20250619, end: 20250619
  9. CYCLOPHOSPHAMIDE [Suspect]
     Active Substance: CYCLOPHOSPHAMIDE
     Dosage: MOST RECENT DOSE: 16-JUL-2025
     Route: 042
     Dates: start: 20250716, end: 20250716
  10. PREDNISONE [Suspect]
     Active Substance: PREDNISONE
     Indication: Diffuse large B-cell lymphoma
     Dosage: MOST RECENT DOSE: 17-JUL-2025
     Route: 048
     Dates: start: 20250619, end: 20250623
  11. PREDNISONE [Suspect]
     Active Substance: PREDNISONE
     Dosage: MOST RECENT DOSE: 17-JUL-2025
     Route: 048
     Dates: start: 20250717, end: 20250720
  12. Sacubitril Valsartan Sodium Tablets [Concomitant]
     Route: 048
     Dates: start: 20250221
  13. BISOPROLOL FUMARATE [Concomitant]
     Active Substance: BISOPROLOL FUMARATE
     Route: 048
     Dates: start: 20250417
  14. ATORVASTATIN CALCIUM [Concomitant]
     Active Substance: ATORVASTATIN CALCIUM
     Route: 048
     Dates: start: 20250221
  15. CLOPIDOGREL BISULFATE [Concomitant]
     Active Substance: CLOPIDOGREL BISULFATE
     Route: 048
     Dates: start: 20250221
  16. ASPIRIN [Concomitant]
     Active Substance: ASPIRIN
     Route: 048
     Dates: start: 20250221
  17. ISOSORBIDE MONONITRATE [Concomitant]
     Active Substance: ISOSORBIDE MONONITRATE
     Route: 048
     Dates: start: 20250222
  18. Trimetazidine Hydrochloride Tablets [Concomitant]
     Route: 048
     Dates: start: 20250222
  19. PRAMIPEXOLE DIHYDROCHLORIDE [Concomitant]
     Active Substance: PRAMIPEXOLE DIHYDROCHLORIDE
     Route: 048
     Dates: start: 2022
  20. Levodopa and Benserazide Hydrochloride Tablets [Concomitant]
     Route: 048
     Dates: start: 2022
  21. Alprazolam Tables [Concomitant]
     Route: 048
     Dates: start: 20250414
  22. POTASSIUM CHLORIDE [Concomitant]
     Active Substance: POTASSIUM CHLORIDE
     Route: 042
     Dates: start: 20250613, end: 20250620
  23. ZOLPIDEM TARTRATE [Concomitant]
     Active Substance: ZOLPIDEM TARTRATE
     Route: 048
     Dates: start: 20250617, end: 20250617
  24. ZOLPIDEM TARTRATE [Concomitant]
     Active Substance: ZOLPIDEM TARTRATE
     Route: 048
     Dates: start: 20250618, end: 20250618
  25. Trazodone?Hydrochloride?Tablets [Concomitant]
     Route: 048
     Dates: start: 20250617
  26. DIPHENHYDRAMINE HYDROCHLORIDE [Concomitant]
     Active Substance: DIPHENHYDRAMINE HYDROCHLORIDE
     Route: 030
     Dates: start: 20250618, end: 20250618
  27. DEXAMETHASONE SODIUM PHOSPHATE [Concomitant]
     Active Substance: DEXAMETHASONE SODIUM PHOSPHATE
     Route: 042
     Dates: start: 20250618, end: 20250618
  28. METHYLPREDNISOLONE SODIUM SUCCINATE [Concomitant]
     Active Substance: METHYLPREDNISOLONE SODIUM SUCCINATE
  29. TORSEMIDE [Concomitant]
     Active Substance: TORSEMIDE
  30. FOSAPREPITANT DIMEGLUMINE [Concomitant]
     Active Substance: FOSAPREPITANT DIMEGLUMINE
  31. ONDANSETRON HYDROCHLORIDE [Concomitant]
     Active Substance: ONDANSETRON HYDROCHLORIDE
  32. ROXATIDINE ACETATE HYDROCHLORIDE [Concomitant]
     Active Substance: ROXATIDINE ACETATE HYDROCHLORIDE
  33. ANF-RHO [Concomitant]
     Active Substance: ANF-RHO
  34. LACTULOSE [Concomitant]
     Active Substance: LACTULOSE
     Dates: start: 20250712, end: 20250726

REACTIONS (1)
  - Hypokalaemia [Recovered/Resolved]

NARRATIVE: CASE EVENT DATE: 20250620
